FAERS Safety Report 8941506 (Version 2)
Quarter: 2013Q1

REPORT INFORMATION
  Report Type: Spontaneous
  Country: DE (occurrence: DE)
  Receive Date: 20121203
  Receipt Date: 20130213
  Transmission Date: 20140127
  Serious: Yes (Other)
  Sender: FDA-Public Use
  Company Number: DE-ASTRAZENECA-2012SE89179

PATIENT
  Sex: Male
  Weight: 3.2 kg

DRUGS (3)
  1. MEPIVACAINE [Suspect]
     Indication: LOCAL ANAESTHESIA
     Route: 064
  2. ROPIVACAINE [Suspect]
     Indication: EPIDURAL ANAESTHESIA
     Route: 064
  3. PRILOCAINE [Suspect]
     Indication: EPISIOTOMY
     Route: 064

REACTIONS (1)
  - Methaemoglobinaemia [Recovered/Resolved]
